FAERS Safety Report 6517347-5 (Version None)
Quarter: 2009Q4

REPORT INFORMATION
  Report Type: 
  Country: None (occurrence: None)
  Receive Date: 20091218
  Receipt Date: 20091209
  Transmission Date: 20100525
  Serious: Yes (Other)
  Sender: FDA-Public Use
  Company Number: 2009AC000505

PATIENT
  Sex: Male

DRUGS (1)
  1. DIGOXIN [Suspect]
     Dosage: ; PO
     Route: 048
     Dates: start: 20080101

REACTIONS (9)
  - BLOOD POTASSIUM INCREASED [None]
  - CARDIOACTIVE DRUG LEVEL INCREASED [None]
  - DEHYDRATION [None]
  - ECONOMIC PROBLEM [None]
  - HEART RATE DECREASED [None]
  - MULTIPLE INJURIES [None]
  - PAIN IN EXTREMITY [None]
  - SOCIAL PROBLEM [None]
  - WHITE BLOOD CELL COUNT INCREASED [None]
